FAERS Safety Report 8552037-9 (Version None)
Quarter: 2012Q3

REPORT INFORMATION
  Report Type: 
  Country: None (occurrence: None)
  Receive Date: 20120731
  Receipt Date: 20120723
  Transmission Date: 20120928
  Serious: Yes (Hospitalization, Other)
  Sender: FDA-Public Use
  Company Number: US-AMGEN-USASP2012045861

PATIENT
  Age: 75 Year
  Sex: Male

DRUGS (1)
  1. ENBREL [Suspect]
     Indication: PSORIATIC ARTHROPATHY
     Dosage: 50 MG, QWK
     Dates: start: 20030826, end: 20120701

REACTIONS (5)
  - COCCIDIOIDOMYCOSIS [None]
  - FALL [None]
  - SPINAL FRACTURE [None]
  - FACE INJURY [None]
  - PSORIATIC ARTHROPATHY [None]
